FAERS Safety Report 7924389-1 (Version None)
Quarter: 2011Q4

REPORT INFORMATION
  Report Type: 
  Country: None (occurrence: None)
  Receive Date: 20111117
  Receipt Date: 20111026
  Transmission Date: 20120403
  Serious: Yes (Other)
  Sender: FDA-Public Use
  Company Number: PHHY2011JP81553

PATIENT
  Sex: Female

DRUGS (4)
  1. CEFAZOLIN SODIUM [Concomitant]
  2. NON-PYRINE COLD PREPARATION [Suspect]
     Indication: NASOPHARYNGITIS
     Dosage: 3 G
     Route: 048
     Dates: start: 20110814, end: 20110819
  3. BASEN [Concomitant]
     Indication: TYPE 2 DIABETES MELLITUS
     Dosage: 0.9 MG
  4. NATEGLINIDE [Suspect]
     Indication: TYPE 2 DIABETES MELLITUS
     Dosage: 270 MG, QD
     Route: 048
     Dates: start: 20110803, end: 20110819

REACTIONS (3)
  - NASOPHARYNGITIS [None]
  - NEUTROPHIL COUNT DECREASED [None]
  - GRANULOCYTOPENIA [None]
